FAERS Safety Report 4448844-4 (Version None)
Quarter: 2004Q3

REPORT INFORMATION
  Report Type: 
  Country: None (occurrence: None)
  Receive Date: 20040909
  Receipt Date: 20040901
  Transmission Date: 20050211
  Serious: Yes (Other)
  Sender: FDA-Public Use
  Company Number: GBWYE011101SEP04

PATIENT

DRUGS (1)
  1. EFFEXOR XR [Suspect]
     Route: 065

REACTIONS (1)
  - ANGIONEUROTIC OEDEMA [None]
